FAERS Safety Report 6645644-1 (Version None)
Quarter: 2010Q1

REPORT INFORMATION
  Report Type: 
  Country: None (occurrence: None)
  Receive Date: 20100323
  Receipt Date: 20100311
  Transmission Date: 20100710
  Serious: Yes (Hospitalization)
  Sender: FDA-Public Use
  Company Number: DE-JNJFOC-20100203668

PATIENT
  Sex: Female
  Weight: 67 kg

DRUGS (4)
  1. USTEKINUMAB [Suspect]
     Route: 042
  2. USTEKINUMAB [Suspect]
     Indication: CROHN'S DISEASE
     Route: 042
  3. CALCIMAGON D3 [Concomitant]
     Route: 048
  4. PREDNISOLONE [Concomitant]
     Indication: CROHN'S DISEASE
     Route: 048

REACTIONS (2)
  - CROHN'S DISEASE [None]
  - GASTRITIS [None]
